FAERS Safety Report 7224313-3 (Version None)
Quarter: 2011Q1

REPORT INFORMATION
  Report Type: 
  Country: None (occurrence: None)
  Receive Date: 20110113
  Receipt Date: 20110106
  Transmission Date: 20110831
  Serious: Yes (Hospitalization, Other)
  Sender: FDA-Public Use
  Company Number: US-ELI_LILLY_AND_COMPANY-US201101001820

PATIENT
  Sex: Male

DRUGS (3)
  1. PLAVIX [Concomitant]
  2. HUMALOG [Suspect]
     Indication: DIABETES MELLITUS
     Dosage: UNK, AS NEEDED
     Dates: start: 20091101
  3. LANTUS [Concomitant]
     Dosage: 70 U, OTHER

REACTIONS (1)
  - MYOCARDIAL INFARCTION [None]
